FAERS Safety Report 15166007 (Version 2)
Quarter: 2018Q4

REPORT INFORMATION
  Report Type: Report from Study
  Country: DE (occurrence: DE)
  Receive Date: 20180719
  Receipt Date: 20180803
  Transmission Date: 20190204
  Serious: Yes (Other)
  Sender: FDA-Public Use
  Company Number: DE-MYLANLABS-2018M1051768

PATIENT
  Age: 27 Year
  Sex: Female

DRUGS (1)
  1. CLIFT(GLATIRAMER ACETATE) [Suspect]
     Active Substance: GLATIRAMER ACETATE
     Indication: MULTIPLE SCLEROSIS
     Dosage: 40 MG, UNK

REACTIONS (2)
  - Drug intolerance [Unknown]
  - Respiratory distress [Unknown]
